FAERS Safety Report 5743834-3 (Version None)
Quarter: 2008Q2

REPORT INFORMATION
  Report Type: 
  Country: None (occurrence: None)
  Receive Date: 20080520
  Receipt Date: 20080514
  Transmission Date: 20081010
  Serious: Yes (Other)
  Sender: FDA-Public Use
  Company Number: US-WYE-H03672008

PATIENT
  Sex: Male
  Weight: 98.93 kg

DRUGS (10)
  1. TYGACIL [Suspect]
     Indication: LOCALISED INFECTION
     Dosage: 100MG INITIALLY, THEN 50 MG Q12H
     Route: 042
     Dates: start: 20080415, end: 20080428
  2. ACETYLSALICYLIC ACID SRT [Concomitant]
     Indication: PROPHYLAXIS
     Dosage: ^81 MG^
     Route: 065
     Dates: start: 20080415
  3. PREVACID [Concomitant]
     Indication: GASTROOESOPHAGEAL REFLUX DISEASE
     Route: 065
     Dates: end: 20080414
  4. LIPITOR [Concomitant]
     Dosage: ^10 MG^
     Route: 065
  5. COUMADIN [Concomitant]
     Indication: ATRIAL FIBRILLATION
     Route: 065
  6. POTASSIUM CHLORIDE [Concomitant]
     Indication: HYPOKALAEMIA
     Route: 065
  7. POTASSIUM CHLORIDE [Concomitant]
     Indication: MEDICAL DIET
  8. LASIX [Concomitant]
     Indication: HYPERTENSION
     Route: 065
  9. TOPROL-XL [Concomitant]
     Indication: HYPERTENSION
     Dosage: ^75 MG^
     Route: 065
     Dates: start: 20080414
  10. DIGOXIN [Concomitant]
     Route: 065
     Dates: end: 20080414

REACTIONS (1)
  - CHEST PAIN [None]
